FAERS Safety Report 9825610 (Version 2)
Quarter: 2014Q3

REPORT INFORMATION
  Report Type: Spontaneous
  Country: US (occurrence: None)
  Receive Date: 20131028
  Receipt Date: 20140922
  Transmission Date: 20150326
  Serious: Yes (Other)
  Sender: FDA-Public Use
  Company Number: 2013US002340

PATIENT
  Age: 66 Year
  Sex: Female
  Weight: 77 kg

DRUGS (6)
  1. ICLUSIG [Suspect]
     Active Substance: PONATINIB
     Indication: ACUTE LYMPHOCYTIC LEUKAEMIA (IN REMISSION)
     Dosage: UNK
     Dates: start: 201303
  2. ICLUSIG [Suspect]
     Active Substance: PONATINIB
     Indication: CHROMOSOME ANALYSIS ABNORMAL
     Dosage: UNK
     Dates: start: 201303
  3. ADRENALIN (EPINEPHRINE BITARTRATE) [Concomitant]
  4. INSULIN REGULAR(INSULIN PORCINE) [Concomitant]
  5. BENADRYL [Concomitant]
     Active Substance: DIPHENHYDRAMINE HYDROCHLORIDE
  6. SOLU-CORTEF (HYDROCORTISONE SODIUM SUCCINATE) [Concomitant]

REACTIONS (13)
  - Chest pain [None]
  - Fall [None]
  - Vomiting [None]
  - Fatigue [None]
  - Dry mouth [None]
  - Headache [None]
  - Malaise [None]
  - Dyspnoea [None]
  - Dizziness [None]
  - Constipation [None]
  - Nausea [None]
  - Blood glucose increased [None]
  - Cataract operation [None]
